FAERS Safety Report 11274137 (Version 1)
Quarter: 2015Q3

REPORT INFORMATION
  Report Type: Spontaneous
  Country: US (occurrence: US)
  Receive Date: 20150715
  Receipt Date: 20150715
  Transmission Date: 20151125
  Serious: Yes (Other)
  Sender: FDA-Public Use
  Company Number: US-BAYER-2015-373395

PATIENT
  Age: 17 Year
  Sex: Male
  Weight: 100 kg

DRUGS (5)
  1. ZYPREXA [Concomitant]
     Active Substance: OLANZAPINE
  2. ONE A DAY MEN^S HEALTH [Suspect]
     Active Substance: VITAMINS
  3. MIDOL COMPLETE [Suspect]
     Active Substance: ACETAMINOPHEN\CAFFEINE\PYRILAMINE MALEATE
     Dosage: 6 DF, ONCE
     Dates: start: 20150706
  4. ZOLOFT [Concomitant]
     Active Substance: SERTRALINE HYDROCHLORIDE
  5. HALOPERIDOL. [Concomitant]
     Active Substance: HALOPERIDOL

REACTIONS (4)
  - Suicide attempt [Unknown]
  - Product use issue [None]
  - Asthenia [None]
  - Intentional product use issue [Unknown]

NARRATIVE: CASE EVENT DATE: 20150706
